FAERS Safety Report 4676271-3 (Version None)
Quarter: 2005Q2

REPORT INFORMATION
  Report Type: 
  Country: None (occurrence: None)
  Receive Date: 20050527
  Receipt Date: 20050211
  Transmission Date: 20051028
  Serious: Yes (Other)
  Sender: FDA-Public Use
  Company Number: US-GLAXOSMITHKLINE-A0545167A

PATIENT
  Age: 68 Year
  Sex: Female

DRUGS (4)
  1. WELLBUTRIN [Suspect]
     Indication: DEPRESSION
     Dosage: 150MG PER DAY
     Route: 048
  2. LITHIUM [Concomitant]
  3. LEVOTHYROXINE SODIUM [Concomitant]
  4. BENICAR [Concomitant]

REACTIONS (3)
  - DEAFNESS [None]
  - HYPERTENSION [None]
  - TINNITUS [None]
